FAERS Safety Report 19582916 (Version 1)
Quarter: 2021Q3

REPORT INFORMATION
  Report Type: Spontaneous
  Country: CN (occurrence: CN)
  Receive Date: 20210720
  Receipt Date: 20210720
  Transmission Date: 20211014
  Serious: Yes (Hospitalization)
  Sender: FDA-Public Use
  Company Number: CN-ROCHE-2873439

PATIENT
  Age: 44 Year
  Sex: Female
  Weight: 51 kg

DRUGS (3)
  1. NEDAPLATIN [Concomitant]
     Active Substance: NEDAPLATIN
     Indication: BREAST CANCER
     Route: 041
     Dates: start: 20210617, end: 20210617
  2. VINORELBINE TARTRATE. [Concomitant]
     Active Substance: VINORELBINE TARTRATE
     Indication: BREAST CANCER
     Route: 041
     Dates: start: 20210617, end: 20210617
  3. HERCEPTIN [Suspect]
     Active Substance: TRASTUZUMAB
     Indication: BREAST CANCER
     Route: 041
     Dates: start: 20210617, end: 20210617

REACTIONS (1)
  - Myelosuppression [Recovering/Resolving]

NARRATIVE: CASE EVENT DATE: 20210623
